FAERS Safety Report 9412570 (Version 1)
Quarter: 2013Q3

REPORT INFORMATION
  Report Type: Spontaneous
  Country: JP (occurrence: JP)
  Receive Date: 20130722
  Receipt Date: 20130722
  Transmission Date: 20140515
  Serious: No
  Sender: FDA-Public Use
  Company Number: JP-ELI_LILLY_AND_COMPANY-JP201307005055

PATIENT
  Age: 36 Year
  Sex: Male

DRUGS (4)
  1. ZYPREXA [Suspect]
     Indication: SCHIZOPHRENIA
     Dosage: 10 MG, QD
     Route: 048
     Dates: start: 20110404, end: 20130624
  2. RISPERDAL [Concomitant]
     Dosage: UNK
     Route: 048
     Dates: start: 20110404, end: 20130623
  3. RISPERDAL [Concomitant]
     Dosage: UNK
     Dates: start: 20130624
  4. HISPORAN [Concomitant]
     Dosage: UNK
     Route: 048

REACTIONS (1)
  - Platelet count decreased [Recovered/Resolved]
